FAERS Safety Report 11303056 (Version 1)
Quarter: 2015Q3

REPORT INFORMATION
  Report Type: Spontaneous
  Country: US (occurrence: US)
  Receive Date: 20150723
  Receipt Date: 20150723
  Transmission Date: 20151125
  Serious: Yes (Other)
  Sender: FDA-Public Use
  Company Number: US-ASTRAZENECA-2015SE70400

PATIENT

DRUGS (2)
  1. BYDUREON [Suspect]
     Active Substance: EXENATIDE
     Dosage: 2 MG 4 COUNT, 2 MG, ONCE A WEEK
     Route: 058
  2. MULTIPLE DIABETIC DRUGS [Concomitant]
     Indication: DIABETES MELLITUS

REACTIONS (1)
  - Pancreatitis [Unknown]
